APPROVED DRUG PRODUCT: PANDEL
Active Ingredient: HYDROCORTISONE PROBUTATE
Strength: 0.1%
Dosage Form/Route: CREAM;TOPICAL
Application: N020453 | Product #001
Applicant: ANI PHARMACEUTICALS INC
Approved: Feb 28, 1997 | RLD: Yes | RS: No | Type: DISCN